FAERS Safety Report 5079507-2 (Version None)
Quarter: 2006Q3

REPORT INFORMATION
  Report Type: 
  Country: None (occurrence: None)
  Receive Date: 20060814
  Receipt Date: 20051012
  Transmission Date: 20061208
  Serious: No
  Sender: FDA-Public Use
  Company Number: US-BRISTOL-MYERS SQUIBB COMPANY-13142377

PATIENT
  Age: 69 Year
  Sex: Male
  Weight: 86 kg

DRUGS (6)
  1. GLUCOVANCE [Suspect]
     Indication: DIABETES MELLITUS NON-INSULIN-DEPENDENT
     Dosage: DOSAGE FORM = 2.5MG/500MG
     Route: 048
  2. GLUCOPHAGE XR [Suspect]
     Indication: DIABETES MELLITUS NON-INSULIN-DEPENDENT
  3. ASPIRIN [Concomitant]
  4. LIPITOR [Concomitant]
  5. ALTACE [Concomitant]
  6. ADVAIR DISKUS 100/50 [Concomitant]
     Dates: start: 20051010

REACTIONS (2)
  - BLOOD GLUCOSE DECREASED [None]
  - BLOOD GLUCOSE INCREASED [None]
